FAERS Safety Report 8495467 (Version 4)
Quarter: 2012Q4

REPORT INFORMATION
  Report Type: 
  Country: JP (occurrence: JP)
  Receive Date: 20120405
  Receipt Date: 20121213
  Transmission Date: 20130627
  Serious: Yes (Death, Life-Threatening, Hospitalization, Other)
  Sender: FDA-Public Use
  Company Number: JP-BAYER-2012-032946

PATIENT
  Age: 70 Year
  Sex: Male
  Weight: 48.07 kg

DRUGS (5)
  1. NEXAVAR [Suspect]
     Indication: CARCINOMA HEPATOCELLULAR
     Dosage: 400 mg, QD
     Route: 048
     Dates: start: 20120126, end: 20120331
  2. LOXONIN [Concomitant]
     Dosage: Daily dose 180 mg
     Route: 048
     Dates: start: 20110922, end: 20120209
  3. MUCOSTA [Concomitant]
     Dosage: Daily dose 300 mg
     Route: 048
     Dates: start: 20110922, end: 20120209
  4. ANTEBATE [Concomitant]
     Indication: PROPHYLAXIS
     Dosage: UNK
     Route: 061
     Dates: start: 20120126, end: 20120331
  5. HIRUDOID [Concomitant]
     Indication: PROPHYLAXIS
     Dosage: UNK
     Route: 061
     Dates: start: 20120126, end: 20120331

REACTIONS (9)
  - Hepatitis fulminant [Fatal]
  - Altered state of consciousness [None]
  - Hepatic failure [None]
  - Melaena [None]
  - Duodenal ulcer haemorrhage [None]
  - Disseminated intravascular coagulation [None]
  - Malaise [None]
  - Pyrexia [None]
  - Decreased appetite [None]
